APPROVED DRUG PRODUCT: TYDEMY
Active Ingredient: DROSPIRENONE; ETHINYL ESTRADIOL; LEVOMEFOLATE CALCIUM
Strength: 3MG,N/A;0.03MG,N/A;0.451MG,0.451MG
Dosage Form/Route: TABLET;ORAL
Application: A205948 | Product #001 | TE Code: AB
Applicant: LUPIN LTD
Approved: Dec 12, 2017 | RLD: No | RS: No | Type: RX